FAERS Safety Report 12754096 (Version 1)
Quarter: 2016Q3

REPORT INFORMATION
  Report Type: Spontaneous
  Country: GB (occurrence: GB)
  Receive Date: 20160916
  Receipt Date: 20160916
  Transmission Date: 20161109
  Serious: Yes (Other)
  Sender: FDA-Public Use
  Company Number: GB-APOTEX-2016AP011932

PATIENT
  Sex: Male

DRUGS (1)
  1. PAXIL [Suspect]
     Active Substance: PAROXETINE HYDROCHLORIDE
     Indication: PRODUCT USED FOR UNKNOWN INDICATION
     Route: 065

REACTIONS (6)
  - Withdrawal syndrome [Unknown]
  - Abnormal behaviour [Unknown]
  - Akathisia [Unknown]
  - Suicidal ideation [Unknown]
  - Depersonalisation/derealisation disorder [Unknown]
  - Dependence [Unknown]
